FAERS Safety Report 19737170 (Version 2)
Quarter: 2021Q3

REPORT INFORMATION
  Report Type: Report from Study
  Country: US (occurrence: US)
  Receive Date: 20210823
  Receipt Date: 20210917
  Transmission Date: 20211014
  Serious: Yes (Other)
  Sender: FDA-Public Use
  Company Number: US-BAYER-2021-196499

PATIENT
  Age: 77 Year
  Sex: Female

DRUGS (1)
  1. VITRAKVI [Suspect]
     Active Substance: LAROTRECTINIB
     Indication: PANCREATIC CARCINOMA
     Dosage: 50 MG, BID
     Route: 048
     Dates: start: 202001

REACTIONS (1)
  - Neuropathy peripheral [Not Recovered/Not Resolved]
